FAERS Safety Report 7289885-1 (Version None)
Quarter: 2011Q1

REPORT INFORMATION
  Report Type: 
  Country: None (occurrence: None)
  Receive Date: 20110214
  Receipt Date: 20110205
  Transmission Date: 20110831
  Serious: Yes (Other)
  Sender: FDA-Public Use
  Company Number: US-AMGEN-USASP2011007068

PATIENT
  Age: 91 Year
  Sex: Female

DRUGS (7)
  1. BENICAR [Concomitant]
  2. LOVAZA [Concomitant]
  3. ARANESP [Suspect]
  4. ARANESP [Suspect]
     Indication: MYELODYSPLASTIC SYNDROME
     Dosage: 200 A?G, Q2WK
  5. TEKTURNA [Concomitant]
  6. KEFLEX [Concomitant]
  7. PRILOSEC [Concomitant]

REACTIONS (5)
  - DYSPNOEA EXERTIONAL [None]
  - ASTHENIA [None]
  - HYPERTENSION [None]
  - VERTIGO [None]
  - MOBILITY DECREASED [None]
